FAERS Safety Report 21219119 (Version 3)
Quarter: 2022Q4

REPORT INFORMATION
  Report Type: Spontaneous
  Country: DE (occurrence: DE)
  Receive Date: 20220816
  Receipt Date: 20221001
  Transmission Date: 20230113
  Serious: Yes (Hospitalization, Other)
  Sender: FDA-Public Use
  Company Number: DE-BoehringerIngelheim-2022-BI-186561

PATIENT
  Sex: Male

DRUGS (4)
  1. PRADAXA [Suspect]
     Active Substance: DABIGATRAN ETEXILATE MESYLATE
     Indication: Atrial fibrillation
     Dates: start: 20220731, end: 20220801
  2. PRADAXA [Suspect]
     Active Substance: DABIGATRAN ETEXILATE MESYLATE
     Dates: start: 20220803, end: 20220805
  3. PRADAXA [Suspect]
     Active Substance: DABIGATRAN ETEXILATE MESYLATE
     Dates: start: 20220805
  4. ENOXAPARIN BECAT [Concomitant]
     Indication: Product used for unknown indication
     Dates: end: 20220730

REACTIONS (3)
  - Transitional cell carcinoma [Unknown]
  - Chromaturia [Unknown]
  - Micturition urgency [Unknown]

NARRATIVE: CASE EVENT DATE: 20220801
